FAERS Safety Report 19436736 (Version 1)
Quarter: 2021Q2

REPORT INFORMATION
  Report Type: Report from Study
  Country: US (occurrence: US)
  Receive Date: 20210618
  Receipt Date: 20210618
  Transmission Date: 20210717
  Serious: Yes (Hospitalization)
  Sender: FDA-Public Use
  Company Number: US-BAUSCH-BL-2021-021179

PATIENT
  Age: 64 Year
  Sex: Female

DRUGS (3)
  1. XIFAXAN [Suspect]
     Active Substance: RIFAXIMIN
     Indication: HEPATIC ENCEPHALOPATHY
     Dosage: STARTED SOMETIME IN /MAR/2021 OR /APR/2021 AND WENT OFF IT
     Route: 048
     Dates: start: 2021, end: 2021
  2. XIFAXAN [Suspect]
     Active Substance: RIFAXIMIN
     Dosage: DOSE REDUCED DUE TO HIGH COST
     Route: 048
     Dates: start: 2021
  3. XIFAXAN [Suspect]
     Active Substance: RIFAXIMIN
     Dosage: RESTARTED BACK
     Route: 048
     Dates: start: 2021, end: 2021

REACTIONS (6)
  - Hospitalisation [Unknown]
  - Intentional product use issue [Unknown]
  - Illness [Unknown]
  - Blood alcohol increased [Unknown]
  - Therapy interrupted [Unknown]
  - Feeling abnormal [Unknown]

NARRATIVE: CASE EVENT DATE: 2021
